FAERS Safety Report 5954740-3 (Version None)
Quarter: 2008Q4

REPORT INFORMATION
  Report Type: 
  Country: None (occurrence: None)
  Receive Date: 20081117
  Receipt Date: 20080916
  Transmission Date: 20090506
  Serious: Yes (Other)
  Sender: FDA-Public Use
  Company Number: PHHY2008FR28364

PATIENT

DRUGS (1)
  1. ACLASTA [Suspect]

REACTIONS (2)
  - ANORECTAL DISCOMFORT [None]
  - HALLUCINATION [None]
